FAERS Safety Report 21436568 (Version 1)
Quarter: 2022Q4

REPORT INFORMATION
  Report Type: Spontaneous
  Country: US (occurrence: US)
  Receive Date: 20221010
  Receipt Date: 20221010
  Transmission Date: 20230113
  Serious: No
  Sender: FDA-Public Use
  Company Number: US-PFIZER INC-202201205557

PATIENT
  Age: 5 Year
  Sex: Male
  Weight: 12.93 kg

DRUGS (1)
  1. GENOTROPIN [Suspect]
     Active Substance: SOMATROPIN
     Indication: Growth disorder
     Dosage: 0.4 MG, DAILY

REACTIONS (4)
  - Drug ineffective [Unknown]
  - Myalgia [Unknown]
  - Pain in extremity [Unknown]
  - Headache [Not Recovered/Not Resolved]
